FAERS Safety Report 7861104-4 (Version None)
Quarter: 2011Q4

REPORT INFORMATION
  Report Type: 
  Country: None (occurrence: None)
  Receive Date: 20111027
  Receipt Date: 20111018
  Transmission Date: 20120403
  Serious: Yes (Hospitalization)
  Sender: FDA-Public Use
  Company Number: BR-MEDIMMUNE-MEDI-0012339

PATIENT
  Sex: Male
  Weight: 7.2 kg

DRUGS (5)
  1. BUDESONIDE [Concomitant]
  2. SYNAGIS [Suspect]
     Route: 030
     Dates: start: 20110401, end: 20110816
  3. KETOTIFEN FUMARATE [Concomitant]
     Indication: ASTHMA PROPHYLAXIS
  4. SYNAGIS [Suspect]
     Route: 030
     Dates: start: 20100719, end: 20100817
  5. LEUCOGEN [Concomitant]
     Indication: IMMUNE ENHANCEMENT THERAPY

REACTIONS (8)
  - INCREASED BRONCHIAL SECRETION [None]
  - PNEUMONIA [None]
  - NASOPHARYNGITIS [None]
  - WHEEZING [None]
  - INFLUENZA [None]
  - RHINITIS [None]
  - PYREXIA [None]
  - LUNG DISORDER [None]
